FAERS Safety Report 5718754-0 (Version None)
Quarter: 2008Q2

REPORT INFORMATION
  Report Type: 
  Country: None (occurrence: None)
  Receive Date: 20080425
  Receipt Date: 20080418
  Transmission Date: 20081010
  Serious: Yes (Other)
  Sender: FDA-Public Use
  Company Number: PHEH2006US01072

PATIENT
  Sex: Female

DRUGS (5)
  1. FAMVIR [Suspect]
     Indication: GENITAL HERPES
     Dosage: 125 MG, BID
     Route: 048
     Dates: start: 20030101
  2. FAMVIR [Suspect]
     Dosage: 250 MG, BID
     Route: 048
  3. FLEXERIL [Suspect]
     Indication: MUSCLE RELAXANT THERAPY
  4. NEXIUM [Concomitant]
  5. RESTORIL [Concomitant]

REACTIONS (17)
  - ARTHRITIS [None]
  - BACK PAIN [None]
  - BLINDNESS [None]
  - BLOOD IMMUNOGLOBULIN A DECREASED [None]
  - BURNING SENSATION [None]
  - CEREBROVASCULAR DISORDER [None]
  - CLUSTER HEADACHE [None]
  - DISCOMFORT [None]
  - DRUG INTERACTION [None]
  - EAR INFECTION [None]
  - ERYTHEMA [None]
  - GLOSSITIS [None]
  - GLOSSODYNIA [None]
  - NECK PAIN [None]
  - NERVOUS SYSTEM DISORDER [None]
  - OPTIC NERVE DISORDER [None]
  - SINUS DISORDER [None]
